FAERS Safety Report 5768330-9 (Version None)
Quarter: 2008Q2

REPORT INFORMATION
  Report Type: 
  Country: None (occurrence: None)
  Receive Date: 20080612
  Receipt Date: 20080317
  Transmission Date: 20081010
  Serious: No
  Sender: FDA-Public Use
  Company Number: US-ABBOTT-08P-163-0438571-00

PATIENT
  Sex: Male
  Weight: 88.53 kg

DRUGS (8)
  1. HUMIRA [Suspect]
     Indication: CROHN'S DISEASE
     Route: 058
     Dates: start: 20080211, end: 20080211
  2. HUMIRA [Suspect]
     Route: 058
     Dates: start: 20080226, end: 20080226
  3. HUMIRA [Suspect]
     Route: 058
  4. PREDNISONE TAB [Concomitant]
     Indication: CROHN'S DISEASE
     Route: 048
  5. LISINOPRIL [Concomitant]
     Indication: HYPERTENSION
     Route: 048
  6. DULOXETINE HYDROCHLORIDE [Concomitant]
     Indication: DEPRESSION
     Route: 048
  7. LOPERAMIDE HCL [Concomitant]
     Indication: PAIN MANAGEMENT
     Route: 048
  8. RABEPRAZOLE SODIUM [Concomitant]
     Indication: CROHN'S DISEASE
     Route: 048

REACTIONS (9)
  - ABDOMINAL PAIN [None]
  - ANGER [None]
  - ANXIETY [None]
  - DEPRESSION [None]
  - FEELING JITTERY [None]
  - HYPERHIDROSIS [None]
  - INSOMNIA [None]
  - PROCTALGIA [None]
  - TREMOR [None]
